FAERS Safety Report 5218354-5 (Version None)
Quarter: 2007Q1

REPORT INFORMATION
  Report Type: 
  Country: None (occurrence: None)
  Receive Date: 20061201
  Receipt Date: 20060327
  Transmission Date: 20070707
  Serious: Yes (Other)
  Sender: FDA-Public Use
  Company Number: PHEH2006US04075

PATIENT

DRUGS (1)
  1. LAMISIL [Suspect]
     Indication: NAIL TINEA
     Dates: start: 20050501

REACTIONS (5)
  - ANOREXIA [None]
  - CACHEXIA [None]
  - DYSGEUSIA [None]
  - HEADACHE [None]
  - WEIGHT DECREASED [None]
